FAERS Safety Report 8342150-3 (Version None)
Quarter: 2012Q2

REPORT INFORMATION
  Report Type: 
  Country: None (occurrence: None)
  Receive Date: 20120507
  Receipt Date: 20120503
  Transmission Date: 20120825
  Serious: Yes (Other)
  Sender: FDA-Public Use
  Company Number: BR-ABBOTT-12P-020-0928872-00

PATIENT
  Sex: Female
  Weight: 52.5 kg

DRUGS (10)
  1. CYMBALTA [Concomitant]
     Indication: DEPRESSION
     Route: 048
     Dates: start: 20120301
  2. UNKNOWN MEDICATION [Concomitant]
     Indication: HORMONE REPLACEMENT THERAPY
     Route: 048
  3. CITALOPRAM HYDROBROMIDE [Concomitant]
     Indication: DEPRESSION
     Route: 048
     Dates: start: 20060101, end: 20120301
  4. CREON [Suspect]
     Indication: PRODUCT USED FOR UNKNOWN INDICATION
     Dosage: 25.000 AT BREAKFAST, LUNCH AND DINNER
     Route: 048
     Dates: start: 20120301
  5. TRIBASIC CALCIUM PHOSPHATE /CHOLECALCIFEROL (OSTEONUTRI) [Concomitant]
     Indication: OSTEOPENIA
     Route: 048
     Dates: start: 20090101, end: 20111101
  6. ALPRAZOLAM [Concomitant]
     Route: 048
     Dates: start: 20120403
  7. NEOSALDINA [Concomitant]
     Indication: HEADACHE
     Dosage: ONE TABLET OR MORE
     Route: 048
  8. ALPRAZOLAM [Concomitant]
     Indication: ANXIETY
     Route: 048
     Dates: start: 20120322, end: 20120322
  9. SIMVASTATIN [Concomitant]
     Indication: BLOOD CHOLESTEROL ABNORMAL
     Route: 048
     Dates: start: 20110101, end: 20120403
  10. UNKNOWN MEDICATION [Concomitant]
     Indication: OSTEOPENIA
     Route: 048
     Dates: start: 20070101, end: 20111101

REACTIONS (15)
  - GENITAL PAIN [None]
  - ABDOMINAL PAIN [None]
  - NEOPLASM MALIGNANT [None]
  - COLITIS [None]
  - ABDOMINAL DISTENSION [None]
  - DYSPEPSIA [None]
  - WEIGHT INCREASED [None]
  - FLATULENCE [None]
  - DYSPHAGIA [None]
  - WEIGHT DECREASED [None]
  - ABNORMAL FAECES [None]
  - EMOTIONAL DISORDER [None]
  - PAINFUL DEFAECATION [None]
  - FAECES PALE [None]
  - DYSURIA [None]
